FAERS Safety Report 5305174-6 (Version None)
Quarter: 2007Q2

REPORT INFORMATION
  Report Type: 
  Country: None (occurrence: None)
  Receive Date: 20070416
  Receipt Date: 20070404
  Transmission Date: 20071010
  Serious: Yes (Death, Hospitalization)
  Sender: FDA-Public Use
  Company Number: 2007-00990

PATIENT
  Age: 79 Year
  Sex: Female

DRUGS (1)
  1. VELCADE [Suspect]
     Indication: DRUG USE FOR UNKNOWN INDICATION
     Dates: start: 20070402

REACTIONS (5)
  - CONFUSIONAL STATE [None]
  - HYPOGLYCAEMIA [None]
  - HYPOTENSION [None]
  - PULMONARY EMBOLISM [None]
  - RESPIRATORY DISTRESS [None]
